FAERS Safety Report 5629917-7 (Version None)
Quarter: 2008Q1

REPORT INFORMATION
  Report Type: 
  Country: None (occurrence: None)
  Receive Date: 20080213
  Receipt Date: 20080201
  Transmission Date: 20080703
  Serious: Yes (Other)
  Sender: FDA-Public Use
  Company Number: 2008SP002530

PATIENT
  Age: 48 Year
  Sex: Female

DRUGS (3)
  1. DESLORATADINE [Suspect]
     Indication: CHOLECYSTECTOMY
     Dosage: 1 DF;QD;PO
     Route: 048
     Dates: start: 20080128, end: 20080130
  2. DESLORATADINE [Suspect]
     Indication: CHOLECYSTECTOMY
     Dosage: 1 DF;QD;PO
     Route: 048
     Dates: start: 20060101
  3. CONTRACEPTIVE PILL [Concomitant]

REACTIONS (3)
  - GASTROENTERITIS [None]
  - HEPATITIS [None]
  - LOSS OF CONSCIOUSNESS [None]
